FAERS Safety Report 4875991-5 (Version None)
Quarter: 2005Q4

REPORT INFORMATION
  Report Type: 
  Country: None (occurrence: None)
  Receive Date: 20051206
  Receipt Date: 20051028
  Transmission Date: 20060501
  Serious: No
  Sender: FDA-Public Use
  Company Number: IND-AE-05-SAN-068

PATIENT
  Sex: Female
  Weight: 65.318 kg

DRUGS (5)
  1. SANCTURA [Suspect]
     Indication: HYPERTONIC BLADDER
     Dosage: 20 MG-BID-ORAL
     Route: 048
     Dates: start: 20050501, end: 20050707
  2. LEVOXYL [Concomitant]
  3. EVISTA [Concomitant]
  4. FOSAMAX [Concomitant]
  5. ZOCOR [Concomitant]

REACTIONS (3)
  - DRY EYE [None]
  - EYE DISCHARGE [None]
  - VISION BLURRED [None]
